FAERS Safety Report 12457872 (Version 1)
Quarter: 2016Q2

REPORT INFORMATION
  Report Type: Spontaneous
  Country: CA (occurrence: CA)
  Receive Date: 20160612
  Receipt Date: 20160612
  Transmission Date: 20160815
  Serious: Yes (Hospitalization, Other)
  Sender: FDA-Public Use
  Company Number: CA-UCBSA-2016021432

PATIENT
  Age: 45 Year

DRUGS (4)
  1. TOPIRAMATE. [Interacting]
     Active Substance: TOPIRAMATE
     Indication: SEIZURE
     Dosage: 200 MG, 2X/DAY (BID)
  2. VALPROIC ACID. [Interacting]
     Active Substance: VALPROIC ACID
     Indication: SEIZURE
     Dosage: 750 MG, 3X/DAY (TID)
     Route: 048
  3. VALPROIC ACID. [Interacting]
     Active Substance: VALPROIC ACID
     Dosage: UNK
  4. KEPPRA [Suspect]
     Active Substance: LEVETIRACETAM
     Indication: SEIZURE
     Dosage: 1500 MG, 2X/DAY (BID)

REACTIONS (12)
  - Ammonia increased [Unknown]
  - Somnolence [Unknown]
  - Drug interaction [Unknown]
  - Encephalopathy [Unknown]
  - Delirium [Unknown]
  - Status epilepticus [Unknown]
  - Agitation [Unknown]
  - Confusional state [Unknown]
  - Pneumonia aspiration [Unknown]
  - Tachypnoea [Unknown]
  - Pyrexia [Unknown]
  - Gamma-glutamyltransferase increased [Unknown]
